FAERS Safety Report 5903921-3 (Version None)
Quarter: 2008Q3

REPORT INFORMATION
  Report Type: 
  Country: None (occurrence: None)
  Receive Date: 20080919
  Receipt Date: 20080529
  Transmission Date: 20090109
  Serious: No
  Sender: FDA-Public Use
  Company Number: US-WYE-H04340808

PATIENT
  Age: 84 Year
  Sex: Female
  Weight: 81.72 kg

DRUGS (2)
  1. PRISTIQ [Suspect]
     Indication: DEPRESSION
     Dosage: 50 MG 1X PER 1 DAY, ORAL
     Route: 048
     Dates: start: 20080522
  2. SYNTHROID [Concomitant]

REACTIONS (1)
  - MEDICATION RESIDUE [None]
